FAERS Safety Report 25954727 (Version 4)
Quarter: 2025Q4

REPORT INFORMATION
  Report Type: Report from Study
  Country: EU (occurrence: EU)
  Receive Date: 20251024
  Receipt Date: 20251203
  Transmission Date: 20260118
  Serious: Yes (Hospitalization, Other)
  Sender: JOHNSON AND JOHNSON
  Company Number: EU-JNJFOC-20251026022

PATIENT
  Age: 62 Year
  Sex: Female

DRUGS (8)
  1. CILTACABTAGENE AUTOLEUCEL [Suspect]
     Active Substance: CILTACABTAGENE AUTOLEUCEL
     Indication: Plasma cell myeloma
     Dosage: 0.75 X10^6 CAR-POSITIVE VIABLE T CELLS/KG
     Route: 042
     Dates: start: 20250707, end: 20250707
  2. ASPIRIN [Concomitant]
     Active Substance: ASPIRIN
     Indication: Thrombosis prophylaxis
     Route: 048
  3. LYRICA [Concomitant]
     Active Substance: PREGABALIN
     Indication: Prophylaxis
     Route: 048
  4. VALTREX [Concomitant]
     Active Substance: VALACYCLOVIR HYDROCHLORIDE
     Indication: Antiviral prophylaxis
     Route: 048
  5. COTRIM [Concomitant]
     Active Substance: SULFAMETHOXAZOLE\TRIMETHOPRIM
     Indication: Antibiotic prophylaxis
     Route: 048
  6. PANTOPRAZOLE SODIUM [Concomitant]
     Active Substance: PANTOPRAZOLE SODIUM
     Indication: Gastrointestinal disorder therapy
     Route: 048
  7. PIPERACILLIN-TAZOBACT [Concomitant]
     Indication: Pneumonia respiratory syncytial viral
     Route: 042
     Dates: start: 20250609, end: 20250616
  8. AZITHROMYCIN [Concomitant]
     Active Substance: AZITHROMYCIN
     Indication: Pneumonia respiratory syncytial viral
     Route: 042
     Dates: start: 20250608, end: 20250610

REACTIONS (12)
  - Cytokine release syndrome [Recovered/Resolved]
  - Sepsis [Recovered/Resolved]
  - Pneumonia fungal [Recovered/Resolved]
  - Vomiting [Recovered/Resolved]
  - General physical health deterioration [Recovered/Resolved]
  - Decreased appetite [Recovered/Resolved]
  - Nausea [Recovered/Resolved]
  - Infusion related reaction [Recovered/Resolved]
  - Urinary tract infection [Recovered/Resolved]
  - Device related infection [Recovered/Resolved]
  - Diarrhoea [Recovered/Resolved]
  - Constipation [Recovered/Resolved]

NARRATIVE: CASE EVENT DATE: 20250712
